FAERS Safety Report 10033931 (Version 2)
Quarter: 2014Q3

REPORT INFORMATION
  Report Type: Spontaneous
  Country: FR (occurrence: FR)
  Receive Date: 20140325
  Receipt Date: 20140801
  Transmission Date: 20150326
  Serious: Yes (Hospitalization)
  Sender: FDA-Public Use
  Company Number: FR-AMGEN-FRASP2014020501

PATIENT
  Age: 56 Year
  Sex: Female
  Weight: 104.5 kg

DRUGS (8)
  1. ENBREL [Suspect]
     Active Substance: ETANERCEPT
     Indication: PSORIATIC ARTHROPATHY
     Dosage: 50 MG, WEEKLY
     Route: 058
     Dates: start: 2008, end: 201311
  2. ENBREL [Suspect]
     Active Substance: ETANERCEPT
     Indication: PSORIATIC ARTHROPATHY
     Dosage: 25 MG, WEEKLY
     Route: 065
     Dates: start: 201311, end: 201312
  3. PARACETAMOL [Concomitant]
     Active Substance: ACETAMINOPHEN
     Dosage: 1 G, 4X/DAY
  4. ENBREL [Suspect]
     Active Substance: ETANERCEPT
     Dosage: 25 MG, WEEKLY
     Route: 058
     Dates: start: 201311, end: 20131217
  5. STEROGYL                           /00765501/ [Concomitant]
     Dosage: 10 DROPS IN THE EVENING
  6. LOXEN                              /00639802/ [Concomitant]
     Active Substance: NICARDIPINE
     Dosage: 50 MG, 2X/DAY
  7. TRIATEC                            /00885601/ [Concomitant]
     Active Substance: RAMIPRIL
     Indication: HYPERTENSION
     Dosage: 5 MG, 1X/DAY
  8. VALIUM [Concomitant]
     Active Substance: DIAZEPAM
     Indication: ANXIETY
     Dosage: 20 MG, IN THE EVENING
     Route: 048

REACTIONS (12)
  - Arthralgia [Unknown]
  - Skin lesion [Unknown]
  - Osteoarthritis [Unknown]
  - Oedema peripheral [Unknown]
  - Treatment failure [Unknown]
  - Joint effusion [Unknown]
  - Obesity [Not Recovered/Not Resolved]
  - Psoriasis [Unknown]
  - Tendon disorder [Unknown]
  - Arthralgia [Unknown]
  - Psoriatic arthropathy [Unknown]
  - Joint injury [Unknown]

NARRATIVE: CASE EVENT DATE: 2012
